FAERS Safety Report 16444705 (Version 1)
Quarter: 2019Q2

REPORT INFORMATION
  Report Type: Spontaneous
  Country: GB (occurrence: GB)
  Receive Date: 20190618
  Receipt Date: 20190618
  Transmission Date: 20190711
  Serious: Yes (Life-Threatening, Hospitalization, Other)
  Sender: FDA-Public Use
  Company Number: GB-MYLANLABS-2012SP002575

PATIENT
  Age: 66 Year
  Sex: Male

DRUGS (2)
  1. DICLOFENAC [Suspect]
     Active Substance: DICLOFENAC
     Indication: PRODUCT USED FOR UNKNOWN INDICATION
     Dosage: UNK
     Route: 065
  2. INFLAMAC /00372302/ [Suspect]
     Active Substance: DICLOFENAC SODIUM
     Indication: BACK PAIN
     Dosage: UNK
     Route: 065

REACTIONS (17)
  - Lethargy [Recovered/Resolved]
  - Suprapubic pain [Recovered/Resolved]
  - Erythema [Recovered/Resolved]
  - White blood cell count decreased [Recovered/Resolved]
  - Skin necrosis [Recovered/Resolved]
  - Pyoderma gangrenosum [Recovered/Resolved]
  - Axillary pain [Recovered/Resolved]
  - Ecthyma [Recovered/Resolved]
  - Eschar [Recovered/Resolved]
  - Pseudomonas infection [Recovered/Resolved]
  - Skin lesion [Recovered/Resolved]
  - Malaise [Recovered/Resolved]
  - Scar [Recovered/Resolved]
  - Decreased appetite [Recovered/Resolved]
  - Oedema [Recovered/Resolved]
  - Neutropenia [Recovered/Resolved]
  - Neutrophil count decreased [Recovered/Resolved]
